FAERS Safety Report 4614867-5 (Version None)
Quarter: 2005Q1

REPORT INFORMATION
  Report Type: 
  Country: None (occurrence: None)
  Receive Date: 20050318
  Receipt Date: 20050318
  Transmission Date: 20050727
  Serious: Yes (Hospitalization)
  Sender: FDA-Public Use
  Company Number: None

PATIENT
  Sex: Male
  Weight: 99.7913 kg

DRUGS (3)
  1. PROPRANOLOL [Suspect]
     Indication: HYPERTENSION
     Dosage: 20 MG - 80 M    PO BID   ORAL
     Route: 048
     Dates: start: 20050221, end: 20050313
  2. METHADONE HCL [Concomitant]
  3. PERCOCET [Concomitant]

REACTIONS (5)
  - CONFUSIONAL STATE [None]
  - COORDINATION ABNORMAL [None]
  - DISORIENTATION [None]
  - HALLUCINATION, VISUAL [None]
  - INSOMNIA [None]
